FAERS Safety Report 9171766 (Version 2)
Quarter: 2013Q3

REPORT INFORMATION
  Report Type: Spontaneous
  Country: FR (occurrence: None)
  Receive Date: 20130313
  Receipt Date: 20130809
  Transmission Date: 20140515
  Serious: Yes (Hospitalization, Disabling, Other)
  Sender: FDA-Public Use
  Company Number: 2013DEPFR00478

PATIENT
  Age: 87 Year
  Sex: Female

DRUGS (4)
  1. DEPOCYT [Suspect]
     Indication: CHRONIC LYMPHOCYTIC LEUKAEMIA
     Route: 037
     Dates: start: 20120813, end: 20120813
  2. METHOTREXATE [Suspect]
     Indication: CHRONIC LYMPHOCYTIC LEUKAEMIA
     Route: 037
     Dates: start: 20120813, end: 20121003
  3. ARACYTINE [Suspect]
     Indication: CHRONIC LYMPHOCYTIC LEUKAEMIA
     Route: 037
     Dates: start: 20120831, end: 20121003
  4. DEPO-MEDROL [Suspect]
     Indication: CHRONIC LYMPHOCYTIC LEUKAEMIA
     Route: 037
     Dates: start: 20120813, end: 20121003

REACTIONS (8)
  - Spinal cord compression [None]
  - Paraparesis [None]
  - Faecal incontinence [None]
  - Hypoaesthesia [None]
  - Urinary incontinence [None]
  - Lumbar spinal stenosis [None]
  - Pulmonary embolism [None]
  - Myelitis transverse [None]
